FAERS Safety Report 10156551 (Version 1)
Quarter: 2014Q2

REPORT INFORMATION
  Report Type: Spontaneous
  Country: US (occurrence: None)
  Receive Date: 20140506
  Receipt Date: 20140506
  Transmission Date: 20141212
  Serious: Yes (Hospitalization)
  Sender: FDA-Public Use
  Company Number: None

PATIENT
  Age: 75 Year
  Sex: Female
  Weight: 56.8 kg

DRUGS (11)
  1. FORTEO [Suspect]
     Route: 058
     Dates: start: 20131122
  2. PREMARIN [Concomitant]
  3. HCTZ [Concomitant]
  4. CALCIUM [Concomitant]
  5. LOVASTATIN [Concomitant]
  6. ASPIRIN [Concomitant]
  7. VITAMIN C [Concomitant]
  8. FISH OIL [Concomitant]
  9. NORCO [Concomitant]
  10. TOPOROL [Concomitant]
  11. LOSARTAN [Concomitant]

REACTIONS (6)
  - Hypokalaemia [None]
  - Atrial fibrillation [None]
  - Fatigue [None]
  - Pollakiuria [None]
  - Lethargy [None]
  - Hypomagnesaemia [None]
